FAERS Safety Report 17263411 (Version 1)
Quarter: 2019Q4

REPORT INFORMATION
  Report Type: Spontaneous
  Country: US (occurrence: US)
  Receive Date: 20191219
  Receipt Date: 20191219
  Transmission Date: 20200122
  Serious: Yes (Hospitalization)
  Sender: FDA-Public Use
  Company Number: None

PATIENT
  Sex: Male

DRUGS (1)
  1. HUMIRA [Suspect]
     Active Substance: ADALIMUMAB
     Dosage: 40MG/0.8ML ONCE IN 14 WEEK SUBCUTANEOUSLY?
     Route: 058
     Dates: start: 20180608, end: 20191022

REACTIONS (2)
  - Hernia [None]
  - Therapy cessation [None]

NARRATIVE: CASE EVENT DATE: 20191111
